FAERS Safety Report 9322707 (Version 1)
Quarter: 2013Q2

REPORT INFORMATION
  Report Type: Report from Study
  Country: JP (occurrence: JP)
  Receive Date: 20130601
  Receipt Date: 20130601
  Transmission Date: 20140414
  Serious: Yes (Other)
  Sender: FDA-Public Use
  Company Number: JP-ROCHE-1229641

PATIENT
  Sex: 0

DRUGS (3)
  1. BEVACIZUMAB [Suspect]
     Indication: OVARIAN CANCER
     Route: 065
  2. ERIBULIN [Suspect]
     Indication: OVARIAN CANCER
     Route: 065
  3. OXALIPLATIN [Suspect]
     Indication: OVARIAN CANCER
     Route: 065

REACTIONS (3)
  - Blood disorder [Unknown]
  - Hypoalbuminaemia [Unknown]
  - Oedema [Unknown]
